FAERS Safety Report 4537008-1 (Version None)
Quarter: 2004Q4

REPORT INFORMATION
  Report Type: 
  Country: None (occurrence: None)
  Receive Date: 20041220
  Receipt Date: 20041207
  Transmission Date: 20050328
  Serious: Yes (Other)
  Sender: FDA-Public Use
  Company Number: 200410635BFR

PATIENT
  Age: 60 Year
  Sex: Male

DRUGS (6)
  1. GLUCOR (ACARBOSE) [Suspect]
     Indication: HYPERGLYCAEMIA
     Dosage: 150 MG, TOTAL DAILY, ORAL
     Route: 048
     Dates: start: 20040101
  2. AMLODIPINE [Concomitant]
  3. TRIVASTAL [Concomitant]
  4. NISIS [Concomitant]
  5. ASPEGIC 325 [Concomitant]
  6. CIFLOX [Concomitant]

REACTIONS (6)
  - GAMMA-GLUTAMYLTRANSFERASE INCREASED [None]
  - NAUSEA [None]
  - PHARYNGOLARYNGEAL PAIN [None]
  - TRANSAMINASES INCREASED [None]
  - VOMITING [None]
  - WEIGHT DECREASED [None]
